FAERS Safety Report 8459800-3 (Version None)
Quarter: 2012Q2

REPORT INFORMATION
  Report Type: 
  Country: None (occurrence: None)
  Receive Date: 20120622
  Receipt Date: 20120614
  Transmission Date: 20120825
  Serious: Yes (Life-Threatening, Hospitalization)
  Sender: FDA-Public Use
  Company Number: PHHO2012DE008922

PATIENT
  Age: 40 Year
  Sex: Male
  Weight: 80 kg

DRUGS (3)
  1. PREDNISOLONE [Concomitant]
     Indication: IMMUNOSUPPRESSION
     Dosage: 20 MG, QD
     Route: 048
     Dates: start: 20120222
  2. MYCOPHENOLIC ACID [Suspect]
     Indication: PANCREAS TRANSPLANT
     Dosage: 720 MG, BID
     Route: 048
     Dates: start: 20120222
  3. PROGRAF [Concomitant]
     Indication: IMMUNOSUPPRESSION
     Dosage: 6 MG, BID
     Route: 048

REACTIONS (2)
  - SPLENIC VEIN THROMBOSIS [None]
  - IMPAIRED HEALING [None]
